FAERS Safety Report 6182087-1 (Version None)
Quarter: 2009Q2

REPORT INFORMATION
  Report Type: 
  Country: None (occurrence: None)
  Receive Date: 20090507
  Receipt Date: 20090429
  Transmission Date: 20091009
  Serious: Yes (Other)
  Sender: FDA-Public Use
  Company Number: CN-PFIZER INC-2009207671

PATIENT

DRUGS (5)
  1. NORVASC [Suspect]
     Indication: HYPERTENSION
     Dosage: 10 MG, 1X/DAY
     Route: 048
     Dates: start: 20090416, end: 20090426
  2. NORVASC [Suspect]
     Dosage: 20 MG, 1X/DAY
     Dates: start: 20090427, end: 20090428
  3. NORVASC [Suspect]
     Dosage: 10 MG, 1X/DAY
     Dates: start: 20090429
  4. METOPROLOL TARTRATE [Concomitant]
     Indication: HYPERTENSION
     Dosage: 75 MG, 2X/DAY
  5. URAPIDIL [Concomitant]
     Indication: HYPERTENSION
     Dosage: 125 MG, 1X/DAY

REACTIONS (2)
  - BLOOD PRESSURE INADEQUATELY CONTROLLED [None]
  - CARDIAC FAILURE ACUTE [None]
